FAERS Safety Report 22316608 (Version 1)
Quarter: 2023Q2

REPORT INFORMATION
  Report Type: Spontaneous
  Country: US (occurrence: US)
  Receive Date: 20230513
  Receipt Date: 20230513
  Transmission Date: 20230722
  Serious: Yes (Hospitalization, Other)
  Sender: FDA-Public Use
  Company Number: US-002147023-NVSC2023US106412

PATIENT
  Age: 74 Year
  Sex: Male

DRUGS (1)
  1. MEKINIST [Suspect]
     Active Substance: TRAMETINIB DIMETHYL SULFOXIDE
     Indication: Product used for unknown indication
     Dosage: 2 MG (MILLIGRAM)
     Route: 048
     Dates: start: 20230415

REACTIONS (10)
  - Pyrexia [Unknown]
  - Cough [Unknown]
  - Diarrhoea [Unknown]
  - Chills [Unknown]
  - Tremor [Unknown]
  - Vomiting [Unknown]
  - Asthenia [Unknown]
  - Loss of consciousness [Unknown]
  - Fall [Unknown]
  - Skin injury [Unknown]

NARRATIVE: CASE EVENT DATE: 20230418
